FAERS Safety Report 18723475 (Version 2)
Quarter: 2022Q1

REPORT INFORMATION
  Report Type: Spontaneous
  Country: US (occurrence: US)
  Receive Date: 20210111
  Receipt Date: 20220330
  Transmission Date: 20220423
  Serious: Yes (Other)
  Sender: FDA-Public Use
  Company Number: US-GLAXOSMITHKLINE-US2021GSK004898

PATIENT
  Sex: Male

DRUGS (63)
  1. RANITIDINE [Suspect]
     Active Substance: RANITIDINE
     Indication: Dyspepsia
     Dosage: 75 MG BOTH
     Route: 065
     Dates: start: 198802, end: 199905
  2. RANITIDINE [Suspect]
     Active Substance: RANITIDINE
     Indication: Dyspepsia
     Dosage: 150 MG BOTH
     Route: 065
     Dates: start: 198802, end: 199905
  3. RANITIDINE [Suspect]
     Active Substance: RANITIDINE
     Indication: Dyspepsia
     Dosage: 300 MG, QD
     Route: 065
     Dates: start: 198802, end: 199905
  4. RANITIDINE [Suspect]
     Active Substance: RANITIDINE
     Indication: Gastrooesophageal reflux disease
     Dosage: 75 MG BOTH
     Route: 065
     Dates: start: 198802, end: 199905
  5. RANITIDINE [Suspect]
     Active Substance: RANITIDINE
     Indication: Barrett^s oesophagus
     Dosage: 150 MG BOTH
     Route: 065
     Dates: start: 198802, end: 199905
  6. RANITIDINE [Suspect]
     Active Substance: RANITIDINE
     Dosage: 300 MG, QD
     Route: 065
     Dates: start: 198802, end: 199905
  7. RANITIDINE [Suspect]
     Active Substance: RANITIDINE
     Dosage: UNK
  8. RANITIDINE [Suspect]
     Active Substance: RANITIDINE
     Dosage: UNK
  9. RANITIDINE [Suspect]
     Active Substance: RANITIDINE
     Dosage: UNK
  10. ZANTAC [Suspect]
     Active Substance: RANITIDINE HYDROCHLORIDE
     Indication: Dyspepsia
     Dosage: 25 MG BOTH
     Route: 065
     Dates: start: 198802, end: 199905
  11. ZANTAC [Suspect]
     Active Substance: RANITIDINE HYDROCHLORIDE
     Indication: Dyspepsia
     Dosage: 75 MG BOTH
     Route: 065
     Dates: start: 198802, end: 199905
  12. ZANTAC [Suspect]
     Active Substance: RANITIDINE HYDROCHLORIDE
     Indication: Dyspepsia
     Dosage: 150 MG, QD
     Route: 065
     Dates: start: 198802, end: 199905
  13. ZANTAC [Suspect]
     Active Substance: RANITIDINE HYDROCHLORIDE
     Indication: Gastrooesophageal reflux disease
     Dosage: 25 MG BOTH
     Route: 065
     Dates: start: 198802, end: 199905
  14. ZANTAC [Suspect]
     Active Substance: RANITIDINE HYDROCHLORIDE
     Indication: Barrett^s oesophagus
     Dosage: 75 MG BOTH
     Route: 065
     Dates: start: 198802, end: 199905
  15. ZANTAC [Suspect]
     Active Substance: RANITIDINE HYDROCHLORIDE
     Dosage: 150 MG, QD
     Route: 065
     Dates: start: 198802, end: 199905
  16. ZANTAC [Suspect]
     Active Substance: RANITIDINE HYDROCHLORIDE
     Dosage: UNK
  17. ZANTAC [Suspect]
     Active Substance: RANITIDINE HYDROCHLORIDE
     Dosage: UNK
  18. ZANTAC [Suspect]
     Active Substance: RANITIDINE HYDROCHLORIDE
     Dosage: UNK
  19. ZANTAC [Suspect]
     Active Substance: RANITIDINE HYDROCHLORIDE
     Indication: Dyspepsia
     Dosage: 25 MG BOTH
     Route: 065
     Dates: start: 198802, end: 199905
  20. ZANTAC [Suspect]
     Active Substance: RANITIDINE HYDROCHLORIDE
     Indication: Dyspepsia
     Dosage: 75 MG BOTH
     Route: 065
     Dates: start: 198802, end: 199905
  21. ZANTAC [Suspect]
     Active Substance: RANITIDINE HYDROCHLORIDE
     Indication: Dyspepsia
     Dosage: 150 MG, QD
     Route: 065
     Dates: start: 198802, end: 199905
  22. ZANTAC [Suspect]
     Active Substance: RANITIDINE HYDROCHLORIDE
     Indication: Gastrooesophageal reflux disease
     Dosage: 25 MG BOTH
     Route: 065
     Dates: start: 198802, end: 199905
  23. ZANTAC [Suspect]
     Active Substance: RANITIDINE HYDROCHLORIDE
     Indication: Barrett^s oesophagus
     Dosage: 75 MG BOTH
     Route: 065
     Dates: start: 198802, end: 199905
  24. ZANTAC [Suspect]
     Active Substance: RANITIDINE HYDROCHLORIDE
     Dosage: 150 MG, QD
     Route: 065
     Dates: start: 198802, end: 199905
  25. ZANTAC [Suspect]
     Active Substance: RANITIDINE HYDROCHLORIDE
     Dosage: UNK
  26. ZANTAC [Suspect]
     Active Substance: RANITIDINE HYDROCHLORIDE
     Dosage: UNK
  27. ZANTAC [Suspect]
     Active Substance: RANITIDINE HYDROCHLORIDE
     Dosage: UNK
  28. RANITIDINE [Suspect]
     Active Substance: RANITIDINE
     Indication: Dyspepsia
     Dosage: 75 MG BOTH
     Route: 065
     Dates: start: 198802, end: 199905
  29. RANITIDINE [Suspect]
     Active Substance: RANITIDINE
     Indication: Dyspepsia
     Dosage: 150 MG BOTH
     Route: 065
     Dates: start: 198802, end: 199905
  30. RANITIDINE [Suspect]
     Active Substance: RANITIDINE
     Indication: Dyspepsia
     Dosage: 300 MG, QD
     Route: 065
     Dates: start: 198802, end: 199905
  31. RANITIDINE [Suspect]
     Active Substance: RANITIDINE
     Indication: Gastrooesophageal reflux disease
     Dosage: 25 MG BOTH
     Route: 065
     Dates: start: 198802, end: 199905
  32. RANITIDINE [Suspect]
     Active Substance: RANITIDINE
     Indication: Barrett^s oesophagus
     Dosage: 75 MG BOTH
     Route: 065
     Dates: start: 198802, end: 199905
  33. RANITIDINE [Suspect]
     Active Substance: RANITIDINE
     Dosage: 150 MG, QD
     Route: 065
     Dates: start: 198802, end: 199905
  34. RANITIDINE [Suspect]
     Active Substance: RANITIDINE
     Dosage: 75 MG BOTH
     Route: 065
     Dates: start: 198802, end: 199905
  35. RANITIDINE [Suspect]
     Active Substance: RANITIDINE
     Dosage: 150 MG BOTH
     Route: 065
     Dates: start: 198802, end: 199905
  36. RANITIDINE [Suspect]
     Active Substance: RANITIDINE
     Dosage: 300 MG, QD
     Route: 065
     Dates: start: 198802, end: 199905
  37. RANITIDINE [Suspect]
     Active Substance: RANITIDINE
     Indication: Dyspepsia
     Dosage: 75 MG BOTH
     Route: 065
     Dates: start: 198802, end: 199905
  38. RANITIDINE [Suspect]
     Active Substance: RANITIDINE
     Indication: Dyspepsia
     Dosage: 150 MG BOTH
     Route: 065
     Dates: start: 198802, end: 199905
  39. RANITIDINE [Suspect]
     Active Substance: RANITIDINE
     Indication: Dyspepsia
     Dosage: 300 MG, QD
     Route: 065
     Dates: start: 198802, end: 199905
  40. RANITIDINE [Suspect]
     Active Substance: RANITIDINE
     Indication: Gastrooesophageal reflux disease
     Dosage: 75 MG BOTH
     Route: 065
     Dates: start: 198802, end: 199905
  41. RANITIDINE [Suspect]
     Active Substance: RANITIDINE
     Indication: Barrett^s oesophagus
     Dosage: 150 MG BOTH
     Route: 065
     Dates: start: 198802, end: 199905
  42. RANITIDINE [Suspect]
     Active Substance: RANITIDINE
     Dosage: 300 MG, QD
     Route: 065
     Dates: start: 198802, end: 199905
  43. RANITIDINE [Suspect]
     Active Substance: RANITIDINE
     Dosage: UNK
  44. RANITIDINE [Suspect]
     Active Substance: RANITIDINE
     Dosage: UNK
  45. RANITIDINE [Suspect]
     Active Substance: RANITIDINE
     Dosage: UNK
  46. RANITIDINE [Suspect]
     Active Substance: RANITIDINE
     Indication: Dyspepsia
     Dosage: 75 MG BOTH
     Route: 065
     Dates: start: 198802, end: 199905
  47. RANITIDINE [Suspect]
     Active Substance: RANITIDINE
     Indication: Dyspepsia
     Dosage: 150 MG BOTH
     Route: 065
     Dates: start: 198802, end: 199905
  48. RANITIDINE [Suspect]
     Active Substance: RANITIDINE
     Indication: Dyspepsia
     Dosage: 300 MG, QD
     Route: 065
     Dates: start: 198802, end: 199905
  49. RANITIDINE [Suspect]
     Active Substance: RANITIDINE
     Indication: Gastrooesophageal reflux disease
     Dosage: 75 MG BOTH
     Route: 065
     Dates: start: 198802, end: 199905
  50. RANITIDINE [Suspect]
     Active Substance: RANITIDINE
     Indication: Barrett^s oesophagus
     Dosage: 150 MG BOTH
     Route: 065
     Dates: start: 198802, end: 199905
  51. RANITIDINE [Suspect]
     Active Substance: RANITIDINE
     Dosage: 300 MG, QD
     Route: 065
     Dates: start: 198802, end: 199905
  52. RANITIDINE [Suspect]
     Active Substance: RANITIDINE
     Dosage: UNK
  53. RANITIDINE [Suspect]
     Active Substance: RANITIDINE
     Dosage: UNK
  54. RANITIDINE [Suspect]
     Active Substance: RANITIDINE
     Dosage: UNK
  55. ZANTAC [Suspect]
     Active Substance: RANITIDINE HYDROCHLORIDE
     Indication: Dyspepsia
     Dosage: 25 MG BOTH
     Route: 065
     Dates: start: 198802, end: 199905
  56. ZANTAC [Suspect]
     Active Substance: RANITIDINE HYDROCHLORIDE
     Indication: Dyspepsia
     Dosage: 75 MG BOTH
     Route: 065
     Dates: start: 198802, end: 199905
  57. ZANTAC [Suspect]
     Active Substance: RANITIDINE HYDROCHLORIDE
     Indication: Dyspepsia
     Dosage: 150 MG, QD
     Route: 065
     Dates: start: 198802, end: 199905
  58. ZANTAC [Suspect]
     Active Substance: RANITIDINE HYDROCHLORIDE
     Indication: Gastrooesophageal reflux disease
     Dosage: UNK
  59. ZANTAC [Suspect]
     Active Substance: RANITIDINE HYDROCHLORIDE
     Indication: Barrett^s oesophagus
     Dosage: UNK
  60. ZANTAC [Suspect]
     Active Substance: RANITIDINE HYDROCHLORIDE
     Dosage: UNK
  61. ZANTAC [Suspect]
     Active Substance: RANITIDINE HYDROCHLORIDE
     Dosage: UNK
  62. ZANTAC [Suspect]
     Active Substance: RANITIDINE HYDROCHLORIDE
     Dosage: UNK
  63. ZANTAC [Suspect]
     Active Substance: RANITIDINE HYDROCHLORIDE
     Dosage: UNK

REACTIONS (1)
  - Prostate cancer [Unknown]
